FAERS Safety Report 9965152 (Version 1)
Quarter: 2014Q1

REPORT INFORMATION
  Report Type: Report from Study
  Country: US (occurrence: US)
  Receive Date: 20140305
  Receipt Date: 20140305
  Transmission Date: 20141002
  Serious: No
  Sender: FDA-Public Use
  Company Number: US-ABBVIE-13P-163-1127998-00

PATIENT
  Age: 40 Year
  Sex: Female

DRUGS (6)
  1. HUMIRA [Suspect]
     Indication: CROHN^S DISEASE
     Dosage: NO LOADING DOSE
     Dates: start: 20130724
  2. SINGULAIR [Concomitant]
     Indication: ASTHMA
     Dosage: 10MG DAILY
  3. METFORMIN [Concomitant]
     Indication: DIABETES MELLITUS
  4. LOSARTAN [Concomitant]
     Indication: HYPERTENSION
     Dosage: 50MG DAILY
  5. ASA [Concomitant]
     Indication: PAIN
     Dosage: PRN
  6. MOTRIN [Concomitant]
     Indication: PAIN
     Dosage: AS NEEDED

REACTIONS (1)
  - Pollakiuria [Recovering/Resolving]
